FAERS Safety Report 10347240 (Version 5)
Quarter: 2014Q3

REPORT INFORMATION
  Report Type: Report from Study
  Country: GT (occurrence: GT)
  Receive Date: 20140729
  Receipt Date: 20140930
  Transmission Date: 20150326
  Serious: Yes (Life-Threatening, Hospitalization, Other)
  Sender: FDA-Public Use
  Company Number: PHHY2014GT091999

PATIENT
  Age: 39 Year
  Sex: Female
  Weight: 97.51 kg

DRUGS (6)
  1. LIPITOR [Concomitant]
     Active Substance: ATORVASTATIN CALCIUM
     Dosage: 20 MG, QD
  2. LANSOPRAZOL [Concomitant]
     Active Substance: LANSOPRAZOLE
     Dosage: 30 MG, QD
  3. GILENYA [Suspect]
     Active Substance: FINGOLIMOD HYDROCHLORIDE
     Dosage: 0.5 MG, QD
     Dates: start: 201306
  4. PREGABALIN. [Concomitant]
     Active Substance: PREGABALIN
     Dosage: 300 MG, QD
  5. EUTIROX [Concomitant]
     Active Substance: LEVOTHYROXINE SODIUM
     Dosage: 100 UG, QD
  6. TOPIRAMATE. [Concomitant]
     Active Substance: TOPIRAMATE
     Dosage: 200 MG, QD

REACTIONS (22)
  - Multiple sclerosis relapse [Not Recovered/Not Resolved]
  - Urinary tract infection [Recovered/Resolved]
  - Throat tightness [Recovering/Resolving]
  - Depression [Unknown]
  - Constipation [Unknown]
  - Aspartate aminotransferase increased [Unknown]
  - Alanine aminotransferase increased [Unknown]
  - Lymphocyte count decreased [Unknown]
  - Pain [Unknown]
  - Chest discomfort [Unknown]
  - Memory impairment [Unknown]
  - Confusional state [Recovering/Resolving]
  - Hypoaesthesia [Recovering/Resolving]
  - Cognitive disorder [Unknown]
  - Paraesthesia [Recovering/Resolving]
  - Dizziness [Recovering/Resolving]
  - Dyspnoea [Recovering/Resolving]
  - Liver function test abnormal [Unknown]
  - Acne [Unknown]
  - Headache [Unknown]
  - Fatigue [Recovering/Resolving]
  - Dysuria [Unknown]

NARRATIVE: CASE EVENT DATE: 201406
